FAERS Safety Report 15793133 (Version 6)
Quarter: 2019Q1

REPORT INFORMATION
  Report Type: Report from Study
  Country: UA (occurrence: UA)
  Receive Date: 20190107
  Receipt Date: 20190215
  Transmission Date: 20190417
  Serious: Yes (Death, Hospitalization)
  Sender: FDA-Public Use
  Company Number: UA-ROCHE-2239321

PATIENT
  Age: 63 Year
  Sex: Male
  Weight: 101 kg

DRUGS (3)
  1. ATEZOLIZUMAB. [Suspect]
     Active Substance: ATEZOLIZUMAB
     Indication: RENAL CELL CARCINOMA
     Dosage: AT 10 20,
     Route: 042
     Dates: start: 20181217
  2. VEROSPIRON [Concomitant]
     Active Substance: SPIRONOLACTONE
     Route: 048
     Dates: start: 201810
  3. KOMBISART H [Concomitant]
     Route: 048
     Dates: start: 201810

REACTIONS (1)
  - Multiple organ dysfunction syndrome [Fatal]

NARRATIVE: CASE EVENT DATE: 20181228
